FAERS Safety Report 9518423 (Version 1)
Quarter: 2013Q3

REPORT INFORMATION
  Report Type: Spontaneous
  Country: US (occurrence: None)
  Receive Date: 20130910
  Receipt Date: 20130910
  Transmission Date: 20140515
  Serious: Yes (Death)
  Sender: FDA-Public Use
  Company Number: 130297

PATIENT
  Age: 19 Year
  Sex: Male

DRUGS (16)
  1. NULYTELY [Suspect]
     Indication: OFF LABEL USE
     Dosage: LESS THAN 32 OZ./UNK/NG
     Dates: start: 20110921, end: 20110922
  2. LITHIUM [Concomitant]
  3. VALIUM [Concomitant]
  4. CLONIDINE [Concomitant]
  5. LEVOXYL [Concomitant]
  6. ZYRTEC [Concomitant]
  7. THORAZINE [Concomitant]
  8. COGENTIN [Concomitant]
  9. LISINOPRIL [Concomitant]
  10. SEROQUEL [Concomitant]
  11. AMANTADINE [Concomitant]
  12. COLACE [Concomitant]
  13. MULTIVITAMINS [Concomitant]
  14. FISH OIL [Concomitant]
  15. CHLORPROMAZINE [Concomitant]
  16. UNSPECIFIED MEDICATION FOR CONSTIPATION [Concomitant]

REACTIONS (2)
  - Megacolon [None]
  - Disease complication [None]
